FAERS Safety Report 20331871 (Version 2)
Quarter: 2022Q2

REPORT INFORMATION
  Report Type: Other
  Country: US (occurrence: None)
  Receive Date: 20220113
  Receipt Date: 20220421
  Transmission Date: 20220721
  Serious: No
  Sender: FDA-Public Use
  Company Number: US-ROCHE-3000413

PATIENT
  Age: 28 Year

DRUGS (1)
  1. OCRELIZUMAB [Suspect]
     Active Substance: OCRELIZUMAB
     Indication: Multiple sclerosis
     Dosage: 300 MG INTRAVENOUS INFUSION, FOLLOWED TWO WEEKS LATER BY A SECOND 300 MG INTRAVENOUS INFUSION.?SUBSE
     Route: 042

REACTIONS (2)
  - COVID-19 [Not Recovered/Not Resolved]
  - Nasopharyngitis [Recovered/Resolved]

NARRATIVE: CASE EVENT DATE: 20210819
